FAERS Safety Report 6020902-2 (Version None)
Quarter: 2008Q4

REPORT INFORMATION
  Report Type: 
  Country: None (occurrence: None)
  Receive Date: 20081229
  Receipt Date: 20081215
  Transmission Date: 20090506
  Serious: Yes (Death)
  Sender: FDA-Public Use
  Company Number: US-PFIZER INC-2008153739

PATIENT
  Sex: Female

DRUGS (2)
  1. GABAPENTIN [Suspect]
  2. QUETIAPINE [Suspect]
     Dosage: UNK

REACTIONS (3)
  - CARDIAC ARREST [None]
  - DEATH [None]
  - RESPIRATORY ARREST [None]
